FAERS Safety Report 9858547 (Version 1)
Quarter: 2014Q1

REPORT INFORMATION
  Report Type: Spontaneous
  Country: US (occurrence: US)
  Receive Date: 20140131
  Receipt Date: 20140131
  Transmission Date: 20141002
  Serious: Yes (Hospitalization)
  Sender: FDA-Public Use
  Company Number: US-INCYTE CORPORATION-2014IN000169

PATIENT
  Sex: Male

DRUGS (1)
  1. JAKAFI [Suspect]
     Dosage: NOT SPECIFIED
     Route: 048

REACTIONS (2)
  - Dysphonia [Unknown]
  - Dysphagia [Unknown]
